FAERS Safety Report 8357774-7 (Version None)
Quarter: 2012Q2

REPORT INFORMATION
  Report Type: 
  Country: None (occurrence: None)
  Receive Date: 20120514
  Receipt Date: 20110406
  Transmission Date: 20120825
  Serious: No
  Sender: FDA-Public Use
  Company Number: US-ALEXION-A201100486

PATIENT
  Sex: Male

DRUGS (4)
  1. ZANTAC [Concomitant]
     Indication: PEPTIC ULCER
     Dosage: 150 MG QD
     Route: 048
  2. DILTIAZEM [Concomitant]
     Dosage: UNK
  3. COUMADIN [Concomitant]
     Dosage: 7.5 MG QD
     Route: 048
  4. SOLIRIS [Suspect]
     Indication: PAROXYSMAL NOCTURNAL HAEMOGLOBINURIA
     Dosage: UNK
     Route: 042

REACTIONS (2)
  - ABDOMINAL PAIN UPPER [None]
  - HAEMATOCHEZIA [None]
